FAERS Safety Report 14878793 (Version 1)
Quarter: 2018Q2

REPORT INFORMATION
  Report Type: Spontaneous
  Country: SE (occurrence: SE)
  Receive Date: 20180511
  Receipt Date: 20180511
  Transmission Date: 20180711
  Serious: Yes (Other)
  Sender: FDA-Public Use
  Company Number: SE-TEVA-2018-SE-891782

PATIENT
  Age: 79 Year
  Sex: Female
  Weight: 85 kg

DRUGS (3)
  1. TRAMADOL. [Suspect]
     Active Substance: TRAMADOL
     Indication: ANALGESIC THERAPY
     Dosage: FROM 1 TABLET TO 2 TABLETS
     Dates: start: 20180116, end: 20180303
  2. SAROTEN [Suspect]
     Active Substance: AMITRIPTYLINE
     Indication: ANALGESIC THERAPY
     Dosage: 1 / D FIRST WEEK 2 FOLLOWING WEEK UP TO 5 TABLETS / DAY
     Dates: start: 20180116, end: 20180303
  3. ALVEDON 665 MG TABLETT MED MODIFIERAD FRIS?TTNING [Suspect]
     Active Substance: ACETAMINOPHEN
     Indication: ANALGESIC THERAPY
     Dosage: 2 TABLETS
     Dates: start: 20180116, end: 20180303

REACTIONS (6)
  - Dry mouth [Recovering/Resolving]
  - Nightmare [Recovering/Resolving]
  - Decreased appetite [Recovering/Resolving]
  - Amnesia [Recovering/Resolving]
  - Anosmia [Recovering/Resolving]
  - Ageusia [Recovering/Resolving]

NARRATIVE: CASE EVENT DATE: 201802
